FAERS Safety Report 11529460 (Version 1)
Quarter: 2015Q3

REPORT INFORMATION
  Report Type: Spontaneous
  Country: US (occurrence: US)
  Receive Date: 20150921
  Receipt Date: 20150921
  Transmission Date: 20151125
  Serious: Yes (Other)
  Sender: FDA-Public Use
  Company Number: US-PFIZER INC-2015303618

PATIENT
  Age: 54 Year
  Sex: Male
  Weight: 74.83 kg

DRUGS (2)
  1. METHADONE [Concomitant]
     Active Substance: METHADONE HYDROCHLORIDE
     Dosage: 70 MG, 1X/DAY
  2. LYRICA [Suspect]
     Active Substance: PREGABALIN
     Indication: NEUROPATHY PERIPHERAL
     Dosage: 900 MG, 1X/DAY
     Dates: start: 2014

REACTIONS (3)
  - Mouth swelling [Unknown]
  - Overdose [Unknown]
  - Tooth disorder [Unknown]
